FAERS Safety Report 7803349-5 (Version None)
Quarter: 2011Q4

REPORT INFORMATION
  Report Type: 
  Country: None (occurrence: None)
  Receive Date: 20111007
  Receipt Date: 20111003
  Transmission Date: 20120403
  Serious: Yes (Death, Other)
  Sender: FDA-Public Use
  Company Number: PHHY2011NL59941

PATIENT
  Sex: Female
  Weight: 65 kg

DRUGS (12)
  1. MORPHINE [Concomitant]
  2. NADROPARIN [Concomitant]
     Dates: start: 20110627, end: 20110628
  3. OXAZEPAM [Concomitant]
     Dosage: 10 MG 2DD1
     Route: 048
     Dates: start: 20110626
  4. AMITRIP [Concomitant]
     Dosage: 10 MG, 1DD1
     Route: 048
     Dates: start: 20110614, end: 20110625
  5. FENTANYL [Concomitant]
     Dosage: 50 UG,
  6. MAGNESIUM HYDROXIDE [Concomitant]
  7. DEXAMETHASONE [Concomitant]
     Dosage: 20 MG, 1DD
  8. MIDAZOLAM HCL [Concomitant]
  9. PANTOPRAZOLE [Concomitant]
     Dosage: 40 MG,1DD1
     Route: 048
     Dates: start: 20110625
  10. ACETAMINOPHEN [Concomitant]
     Dosage: 1000 MG 3DD
     Route: 048
  11. ZOMETA [Suspect]
     Indication: BREAST CANCER
     Dosage: 4 MG, Q12H
     Route: 042
     Dates: start: 20110106, end: 20110619
  12. TEMAZEPAM [Concomitant]
     Dosage: 10 MG, 1DD1
     Route: 048
     Dates: start: 20110625

REACTIONS (11)
  - HAEMOGLOBIN DECREASED [None]
  - BLOOD ALBUMIN DECREASED [None]
  - DYSPNOEA [None]
  - PLEURAL NEOPLASM [None]
  - C-REACTIVE PROTEIN INCREASED [None]
  - BLOOD CALCIUM DECREASED [None]
  - MITRAL VALVE DISEASE MIXED [None]
  - RESPIRATORY FAILURE [None]
  - INFERIOR VENA CAVA SYNDROME [None]
  - CARBOHYDRATE ANTIGEN 125 INCREASED [None]
  - LEUKOPENIA [None]
